FAERS Safety Report 23793070 (Version 7)
Quarter: 2025Q4

REPORT INFORMATION
  Report Type: Spontaneous
  Country: JP (occurrence: JP)
  Receive Date: 20240429
  Receipt Date: 20251202
  Transmission Date: 20260117
  Serious: Yes (Death, Other)
  Sender: BRISTOL-MYERS SQUIBB COMPANY
  Company Number: JP-ONO-2024JP009135

PATIENT
  Age: 75 Year
  Sex: Male

DRUGS (1)
  1. OPDIVO [Suspect]
     Active Substance: NIVOLUMAB
     Indication: Oesophageal carcinoma
     Route: 041

REACTIONS (6)
  - Immune-mediated cholangitis [Fatal]
  - Sepsis [Fatal]
  - Gastric ulcer perforation [Unknown]
  - Pericardial injury [Unknown]
  - Disseminated intravascular coagulation [Unknown]
  - Multiple organ dysfunction syndrome [Unknown]
